FAERS Safety Report 17147620 (Version 3)
Quarter: 2021Q1

REPORT INFORMATION
  Report Type: Spontaneous
  Country: IN (occurrence: IN)
  Receive Date: 20191212
  Receipt Date: 20210127
  Transmission Date: 20210419
  Serious: Yes (Hospitalization, Other)
  Sender: FDA-Public Use
  Company Number: IN-GLENMARK PHARMACEUTICALS-2019GMK044810

PATIENT
  Age: 35 Year
  Sex: Male

DRUGS (6)
  1. WYSOLONE [Concomitant]
     Active Substance: PREDNISOLONE
     Indication: IMMUNOSUPPRESSANT DRUG THERAPY
     Dosage: UNK
     Route: 065
  2. TACROLIMUS. [Suspect]
     Active Substance: TACROLIMUS
     Indication: IMMUNOSUPPRESSANT DRUG THERAPY
     Dosage: UNK; THREE DOSES
     Route: 065
  3. TACROLIMUS. [Suspect]
     Active Substance: TACROLIMUS
     Dosage: UNK; DOSE REDUCED
     Route: 065
  4. MMF [Concomitant]
     Active Substance: MYCOPHENOLATE MOFETIL
     Indication: IMMUNOSUPPRESSANT DRUG THERAPY
     Dosage: UNK
     Route: 065
  5. WYSOLONE [Concomitant]
     Active Substance: PREDNISOLONE
     Dosage: UNK; DOSE WAS TAPERED TO 5 MG/DAY
     Route: 065
  6. SOLU?MEDROL [Concomitant]
     Active Substance: METHYLPREDNISOLONE SODIUM SUCCINATE
     Indication: IMMUNOSUPPRESSANT DRUG THERAPY
     Dosage: UNK; THREE DOSES
     Route: 065

REACTIONS (9)
  - Muscular weakness [Recovering/Resolving]
  - Diarrhoea [Recovering/Resolving]
  - Toxicity to various agents [Recovering/Resolving]
  - Peroneal nerve palsy [Recovering/Resolving]
  - Neurotoxicity [Recovering/Resolving]
  - Demyelination [Recovering/Resolving]
  - Drug level increased [Recovering/Resolving]
  - Blood electrolytes abnormal [Recovered/Resolved]
  - Renal impairment [Recovering/Resolving]
